FAERS Safety Report 11914465 (Version 1)
Quarter: 2016Q1

REPORT INFORMATION
  Report Type: Spontaneous
  Country: DE (occurrence: DE)
  Receive Date: 20160113
  Receipt Date: 20160113
  Transmission Date: 20160526
  Serious: Yes (Hospitalization, Disabling)
  Sender: FDA-Public Use
  Company Number: DE-BAYER-2016-005425

PATIENT
  Sex: Female

DRUGS (1)
  1. JAYDESS [Suspect]
     Active Substance: LEVONORGESTREL
     Dosage: 14 MCG/24HR, CONT
     Route: 015
     Dates: start: 201412

REACTIONS (15)
  - Activities of daily living impaired [None]
  - Dizziness [None]
  - General physical health deterioration [None]
  - Ectopic pregnancy with contraceptive device [None]
  - Metrorrhagia [None]
  - Coital bleeding [None]
  - Pelvic organ injury [None]
  - Ovarian cyst [None]
  - Abdominal pain lower [None]
  - Nausea [None]
  - Drug ineffective [None]
  - Ruptured ectopic pregnancy [None]
  - Procedural pain [None]
  - Dyspareunia [None]
  - Dysmenorrhoea [None]

NARRATIVE: CASE EVENT DATE: 2014
